FAERS Safety Report 23545705 (Version 1)
Quarter: 2024Q1

REPORT INFORMATION
  Report Type: Spontaneous
  Country: CA (occurrence: CA)
  Receive Date: 20240220
  Receipt Date: 20240220
  Transmission Date: 20240410
  Serious: Yes (Hospitalization, Other)
  Sender: FDA-Public Use
  Company Number: CA-TAKEDA-2024TUS015473

PATIENT
  Age: 29 Year
  Sex: Female

DRUGS (7)
  1. MESALAMINE [Suspect]
     Active Substance: MESALAMINE
     Indication: Colitis ulcerative
     Dosage: 1 DOSAGE FORM, QD
     Route: 065
  2. COPAXONE [Suspect]
     Active Substance: GLATIRAMER ACETATE
     Indication: Multiple sclerosis
     Dosage: UNK
     Route: 065
  3. VITAMIN D [Suspect]
     Active Substance: VITAMIN D NOS
     Indication: Multiple sclerosis
     Dosage: UNK, QD
     Route: 065
  4. VITAMIN D [Suspect]
     Active Substance: VITAMIN D NOS
     Dosage: UNK, QD
     Route: 065
  5. IRON [Concomitant]
     Active Substance: IRON
     Indication: Pregnancy
     Dosage: UNK
     Route: 065
  6. MAGNESIUM [Concomitant]
     Active Substance: MAGNESIUM
     Indication: Pregnancy
     Dosage: UNK
     Route: 065
  7. NICOTINAMIDE [Concomitant]
     Active Substance: NIACINAMIDE
     Indication: Pregnancy
     Dosage: UNK
     Route: 065

REACTIONS (5)
  - Abortion spontaneous [Recovered/Resolved]
  - Colitis ulcerative [Recovered/Resolved]
  - Intestinal obstruction [Recovered/Resolved]
  - Drug ineffective [Unknown]
  - Exposure during pregnancy [Unknown]
